FAERS Safety Report 4464185-3 (Version None)
Quarter: 2004Q4

REPORT INFORMATION
  Report Type: 
  Country: None (occurrence: None)
  Receive Date: 20041001
  Receipt Date: 20040820
  Transmission Date: 20050328
  Serious: Yes (Other)
  Sender: FDA-Public Use
  Company Number: US-GLAXOSMITHKLINE-A0523002A

PATIENT
  Sex: Female

DRUGS (1)
  1. PAXIL [Suspect]
     Indication: ANXIETY
     Dosage: 40MG PER DAY
     Route: 048

REACTIONS (3)
  - ANXIETY [None]
  - HOMICIDAL IDEATION [None]
  - SUICIDAL IDEATION [None]
